FAERS Safety Report 4434483-8 (Version None)
Quarter: 2004Q3

REPORT INFORMATION
  Report Type: 
  Country: None (occurrence: None)
  Receive Date: 20040726
  Receipt Date: 20040315
  Transmission Date: 20050211
  Serious: No
  Sender: FDA-Public Use
  Company Number: USA040361950

PATIENT
  Age: 43 Year
  Sex: Female
  Weight: 91 kg

DRUGS (2)
  1. FORTEO [Suspect]
     Indication: OSTEOPOROSIS
     Dosage: 20 UG 1 DAY
     Dates: start: 20040201
  2. HUMALOG [Suspect]
     Dates: start: 19980101

REACTIONS (3)
  - ARTHRALGIA [None]
  - BURNING SENSATION [None]
  - FOOT FRACTURE [None]
